FAERS Safety Report 16735992 (Version 1)
Quarter: 2019Q4

REPORT INFORMATION
  Report Type: Spontaneous
  Country: US (occurrence: US)
  Receive Date: 20190823
  Receipt Date: 20190823
  Transmission Date: 20200122
  Serious: Yes (Other)
  Sender: FDA-Public Use
  Company Number: None

PATIENT
  Age: 66 Year
  Sex: Female

DRUGS (1)
  1. NEOMYCIN-POLYMYXIN-DEXAMETHASONE [Suspect]
     Active Substance: DEXAMETHASONE\NEOMYCIN\POLYMYXIN B SULFATE
     Indication: EYELID INFECTION
     Dates: start: 20190523, end: 20190606

REACTIONS (3)
  - Infection [None]
  - Eye infection [None]
  - Recalled product [None]

NARRATIVE: CASE EVENT DATE: 20190603
